FAERS Safety Report 12782881 (Version 5)
Quarter: 2017Q1

REPORT INFORMATION
  Report Type: Spontaneous
  Country: US (occurrence: US)
  Receive Date: 20160927
  Receipt Date: 20170123
  Transmission Date: 20170428
  Serious: Yes (Other)
  Sender: FDA-Public Use
  Company Number: US-PFIZER INC-2016180601

PATIENT
  Age: 13 Year
  Sex: Male
  Weight: 63 kg

DRUGS (6)
  1. XALKORI [Suspect]
     Active Substance: CRIZOTINIB
     Dosage: 600 MG, DAILY (400 MG 9 A.M. + 200 MG P.M.)
     Route: 048
     Dates: start: 201603, end: 20160812
  2. XALKORI [Suspect]
     Active Substance: CRIZOTINIB
     Dosage: 600 MG, DAILY (200 MG Q AM + 400 MG Q PM)
     Route: 048
     Dates: start: 20160415, end: 20161231
  3. ZOFRAN [Concomitant]
     Active Substance: ONDANSETRON HYDROCHLORIDE
     Indication: NAUSEA
     Dosage: 4 MG, AS NEEDED
     Route: 048
  4. XALKORI [Suspect]
     Active Substance: CRIZOTINIB
     Indication: INFLAMMATORY MYOFIBROBLASTIC TUMOUR
     Dosage: 400 MG, 2X/DAY (2 CAPSULES BID, 800 MG/DAY)
     Route: 048
     Dates: start: 201603, end: 201603
  5. XALKORI [Suspect]
     Active Substance: CRIZOTINIB
     Dosage: 600 MG, DAILY (200 MG IN THE MORNING AND 400 MG IN EVENING)
     Route: 048
     Dates: start: 20160314
  6. PREDNISONE. [Concomitant]
     Active Substance: PREDNISONE
     Indication: INFLAMMATION
     Dosage: 50 MG, 2X/DAY (20 MG 2 1/2 TABLETS TWICE A DAY)
     Route: 048
     Dates: start: 20160713, end: 20160727

REACTIONS (8)
  - Diarrhoea [Recovered/Resolved]
  - Disease progression [Unknown]
  - Nausea [Recovered/Resolved]
  - Inflammatory myofibroblastic tumour [Unknown]
  - Product use issue [Unknown]
  - Neutropenia [Recovered/Resolved]
  - Immune system disorder [Recovered/Resolved]
  - Vomiting [Recovered/Resolved]

NARRATIVE: CASE EVENT DATE: 20160405
